FAERS Safety Report 20945049 (Version 1)
Quarter: 2022Q2

REPORT INFORMATION
  Report Type: Spontaneous
  Country: US (occurrence: None)
  Receive Date: 20220609
  Receipt Date: 20220609
  Transmission Date: 20220721
  Serious: Yes (Other)
  Sender: FDA-Public Use
  Company Number: None

PATIENT
  Age: 77 Year
  Sex: Male
  Weight: 67.5 kg

DRUGS (3)
  1. PAXLOVID [Suspect]
     Active Substance: NIRMATRELVIR\RITONAVIR
     Indication: COVID-19
     Dosage: OTHER QUANTITY : 30 TABLET(S);?
     Dates: start: 20220520, end: 20220525
  2. METFORMIN [Concomitant]
     Active Substance: METFORMIN HYDROCHLORIDE
  3. simvastatin (stopped for 15 days beginning 5/20/2022) [Concomitant]

REACTIONS (3)
  - COVID-19 [None]
  - Rebound effect [None]
  - Breakthrough COVID-19 [None]

NARRATIVE: CASE EVENT DATE: 20220602
